FAERS Safety Report 16893588 (Version 1)
Quarter: 2019Q4

REPORT INFORMATION
  Report Type: Spontaneous
  Country: US (occurrence: US)
  Receive Date: 20190813
  Receipt Date: 20190813
  Transmission Date: 20200122
  Serious: No
  Sender: FDA-Public Use
  Company Number: None

PATIENT
  Age: 84 Year
  Sex: Male
  Weight: 72.57 kg

DRUGS (6)
  1. LISINOPRIL/HYDROCHLOROTHIAZINE [Concomitant]
     Active Substance: HYDROCHLOROTHIAZIDE\LISINOPRIL
  2. RESTASIS [Suspect]
     Active Substance: CYCLOSPORINE
     Indication: DRY EYE
     Dosage: ?          QUANTITY:1 DF DOSAGE FORM;OTHER FREQUENCY:2;?
     Route: 047
     Dates: start: 20190524, end: 20190605
  3. MULTI-VITAMIN [Concomitant]
     Active Substance: .ALPHA.-TOCOPHEROL ACETATE, DL-\ASCORBIC ACID\CYANOCOBALAMIN\FLUORIDE ION\FOLIC ACID\NIACIN\PYRIDOXINE\RIBOFLAVIN\THIAMINE\VITAMIN A\VITAMIN D
  4. VITAMIN D3 [Concomitant]
     Active Substance: CHOLECALCIFEROL
  5. ROSUVASTATIN. [Concomitant]
     Active Substance: ROSUVASTATIN
  6. COQ10 [Concomitant]
     Active Substance: UBIDECARENONE

REACTIONS (1)
  - Conjunctival haemorrhage [None]

NARRATIVE: CASE EVENT DATE: 20190526
